FAERS Safety Report 16011515 (Version 1)
Quarter: 2019Q1

REPORT INFORMATION
  Report Type: Spontaneous
  Country: US (occurrence: US)
  Receive Date: 20190227
  Receipt Date: 20190227
  Transmission Date: 20190418
  Serious: No
  Sender: FDA-Public Use
  Company Number: US-PFIZER INC-2019082517

PATIENT
  Age: 10 Year
  Sex: Female

DRUGS (1)
  1. GENOTROPIN [Suspect]
     Active Substance: SOMATROPIN
     Indication: ECTOPIC POSTERIOR PITUITARY GLAND
     Dosage: 0.7 MG, DAILY

REACTIONS (8)
  - Lymphocyte count decreased [Unknown]
  - Haematocrit increased [Unknown]
  - Monocyte count increased [Unknown]
  - Mean platelet volume increased [Unknown]
  - Product use in unapproved indication [Unknown]
  - Eosinophil count decreased [Unknown]
  - Mean cell haemoglobin concentration decreased [Unknown]
  - White blood cell count decreased [Unknown]

NARRATIVE: CASE EVENT DATE: 20181016
